FAERS Safety Report 4869571-5 (Version None)
Quarter: 2005Q4

REPORT INFORMATION
  Report Type: 
  Country: None (occurrence: None)
  Receive Date: 20051227
  Receipt Date: 20051222
  Transmission Date: 20060501
  Serious: Yes (Hospitalization, Other)
  Sender: FDA-Public Use
  Company Number: HQWYE079619DEC05

PATIENT
  Age: 59 Year
  Sex: Male

DRUGS (10)
  1. RAPAMUNE [Suspect]
     Indication: PROPHYLAXIS AGAINST TRANSPLANT REJECTION
     Dosage: SEE IMAGE
     Route: 048
     Dates: start: 20050331, end: 20050608
  2. RAPAMUNE [Suspect]
     Indication: PROPHYLAXIS AGAINST TRANSPLANT REJECTION
     Dosage: SEE IMAGE
     Route: 048
     Dates: start: 20050609, end: 20050728
  3. RAPAMUNE [Suspect]
     Indication: PROPHYLAXIS AGAINST TRANSPLANT REJECTION
     Dosage: SEE IMAGE
     Route: 048
     Dates: start: 20050729, end: 20050805
  4. RAPAMUNE [Suspect]
     Indication: PROPHYLAXIS AGAINST TRANSPLANT REJECTION
     Dosage: SEE IMAGE
     Route: 048
     Dates: start: 20050806, end: 20050807
  5. CEPHALEXIN [Concomitant]
  6. PHENOBARBITAL TAB [Concomitant]
  7. OMEPRAZOLE [Concomitant]
  8. BACTRIM [Concomitant]
  9. LEVOTHYROXINE SODIUM [Concomitant]
  10. PREDNISONE [Concomitant]

REACTIONS (4)
  - CELLULITIS [None]
  - FISTULA REPAIR [None]
  - LYMPHOEDEMA [None]
  - VENOUS STENOSIS [None]
